FAERS Safety Report 5471569-3 (Version None)
Quarter: 2007Q3

REPORT INFORMATION
  Report Type: 
  Country: None (occurrence: None)
  Receive Date: 20070928
  Receipt Date: 20070118
  Transmission Date: 20080115
  Serious: No
  Sender: FDA-Public Use
  Company Number: US-BRISTOL-MYERS SQUIBB COMPANY-13647383

PATIENT
  Age: 55 Year
  Sex: Male
  Weight: 107 kg

DRUGS (6)
  1. DEFINITY [Suspect]
     Indication: ECHOCARDIOGRAM
     Dosage: 0.4CC IV PUSH IN NORMAL SALINE
     Route: 042
     Dates: start: 20070118, end: 20070118
  2. LISINOPRIL [Concomitant]
  3. METOPROLOL SUCCINATE [Concomitant]
  4. LOVASTATIN [Concomitant]
  5. NEXIUM [Concomitant]
  6. NAPROXEN [Concomitant]

REACTIONS (1)
  - BACK PAIN [None]
